FAERS Safety Report 9110254 (Version 1)
Quarter: 2013Q1

REPORT INFORMATION
  Report Type: Spontaneous
  Country: US (occurrence: US)
  Receive Date: 20130222
  Receipt Date: 20130222
  Transmission Date: 20140127
  Serious: Yes (Hospitalization, Other)
  Sender: FDA-Public Use
  Company Number: US-SANOFI-AVENTIS-2013SA014141

PATIENT
  Age: 69 Year
  Sex: Male

DRUGS (2)
  1. LANTUS [Suspect]
     Indication: TYPE 2 DIABETES MELLITUS
     Dosage: DOSE:30 UNIT(S)
     Route: 058
     Dates: start: 1989
  2. NOVOLOG [Concomitant]
     Indication: TYPE 2 DIABETES MELLITUS

REACTIONS (6)
  - Pneumonia [Recovered/Resolved]
  - Myocardial infarction [Recovered/Resolved]
  - Stent placement [Unknown]
  - Visual acuity reduced [Not Recovered/Not Resolved]
  - Blood glucose decreased [Unknown]
  - Feeling abnormal [Unknown]
